FAERS Safety Report 20884944 (Version 1)
Quarter: 2022Q2

REPORT INFORMATION
  Report Type: Spontaneous
  Country: US (occurrence: US)
  Receive Date: 20220527
  Receipt Date: 20220527
  Transmission Date: 20220721
  Serious: No
  Sender: FDA-Public Use
  Company Number: US-BRISTOL-MYERS SQUIBB COMPANY-2022-046707

PATIENT
  Age: 82 Year
  Sex: Male
  Weight: 79.38 kg

DRUGS (1)
  1. REVLIMID [Suspect]
     Active Substance: LENALIDOMIDE
     Indication: B-cell lymphoma
     Dosage: D1-21 Q28 DAYS
     Route: 048
     Dates: start: 20191116

REACTIONS (2)
  - Tooth abscess [Recovering/Resolving]
  - Intentional product use issue [Unknown]
